FAERS Safety Report 17550918 (Version 2)
Quarter: 2020Q1

REPORT INFORMATION
  Report Type: Spontaneous
  Country: PL (occurrence: PL)
  Receive Date: 20200317
  Receipt Date: 20200323
  Transmission Date: 20200409
  Serious: Yes (Hospitalization, Other)
  Sender: FDA-Public Use
  Company Number: PL-MYLANLABS-2020M1027033

PATIENT
  Age: 40 Year
  Sex: Female
  Weight: 64 kg

DRUGS (15)
  1. TACROLIMUS MYLAN [Suspect]
     Active Substance: TACROLIMUS
     Indication: IMMUNOSUPPRESSANT DRUG THERAPY
     Dosage: INITIALLY AT HIGHER DOSES, AND THEN TITRATED DOWNWARD.
     Route: 065
     Dates: start: 2003
  2. TACROLIMUS MYLAN [Suspect]
     Active Substance: TACROLIMUS
     Dosage: 10 MILLIGRAM, QD(2 X 5 MG)
     Route: 065
  3. PREDNISONE. [Suspect]
     Active Substance: PREDNISONE
     Indication: IMMUNOSUPPRESSANT DRUG THERAPY
     Dosage: DRUG DOSES ON DISCHARGE: 1 X 15 MG
     Route: 065
  4. PREDNISONE. [Suspect]
     Active Substance: PREDNISONE
     Dosage: 10 MILLIGRAM
     Route: 065
  5. PREDNISONE. [Suspect]
     Active Substance: PREDNISONE
     Dosage: INITIALLY AT HIGHER DOSES, AND THEN TITRATED DOWNWARD.
     Route: 065
     Dates: start: 2003
  6. PREDNISONE. [Suspect]
     Active Substance: PREDNISONE
     Dosage: DOSE RECOMMENDED AT DISCHARGE FROM THE HOSPITAL AND GRADUALLY REDUCING AFTER HOSPITALISATION
  7. TACROLIMUS MYLAN [Suspect]
     Active Substance: TACROLIMUS
     Dosage: 6 MILLIGRAM, QD(2 X 3 MG)
     Route: 065
  8. MYCOPHENOLATE MOFETIL. [Suspect]
     Active Substance: MYCOPHENOLATE MOFETIL
     Dosage: 2 X 250 MG
     Route: 065
     Dates: start: 2003
  9. PREDNISONE. [Suspect]
     Active Substance: PREDNISONE
     Dosage: 5 MILLIGRAM X 1
     Route: 065
  10. PREDNISONE. [Suspect]
     Active Substance: PREDNISONE
     Dosage: UNK
  11. TACROLIMUS MYLAN [Suspect]
     Active Substance: TACROLIMUS
     Dosage: DOSE RECOMMENDED AT DISCHARGE FROM THE HOSPITAL
     Route: 065
  12. PREDNISONE. [Suspect]
     Active Substance: PREDNISONE
     Dosage: DRUG DOSES ON DISCHARGE: 2 X 0.5 G
     Route: 065
  13. MYCOPHENOLATE MOFETIL. [Suspect]
     Active Substance: MYCOPHENOLATE MOFETIL
     Indication: IMMUNOSUPPRESSANT DRUG THERAPY
     Dosage: INITIALLY AT HIGHER DOSES, AND THEN TITRATED DOWNWARD.
     Route: 065
     Dates: start: 2003
  14. MYCOPHENOLATE MOFETIL. [Suspect]
     Active Substance: MYCOPHENOLATE MOFETIL
     Dosage: 2 X 1000 MG
     Route: 065
     Dates: start: 2004
  15. MYCOPHENOLATE MOFETIL. [Suspect]
     Active Substance: MYCOPHENOLATE MOFETIL
     Dosage: 1 GRAM, QD(DOSE RECOMMENDED AT DISCHARGE FROM THE HOSPITAL)

REACTIONS (2)
  - Diabetes mellitus [Recovered/Resolved]
  - New onset diabetes after transplantation [Recovered/Resolved]

NARRATIVE: CASE EVENT DATE: 2003
